FAERS Safety Report 24054127 (Version 1)
Quarter: 2024Q3

REPORT INFORMATION
  Report Type: Report from Study
  Country: IR (occurrence: IR)
  Receive Date: 20240705
  Receipt Date: 20240705
  Transmission Date: 20241016
  Serious: Yes (Other)
  Sender: MLV PHARMA
  Company Number: IR-MPL-000043

PATIENT
  Age: 46 Year
  Sex: Female

DRUGS (1)
  1. PYRIDOSTIGMINE [Suspect]
     Active Substance: PYRIDOSTIGMINE
     Indication: Congenital myasthenic syndrome
     Route: 048

REACTIONS (2)
  - Congenital myasthenic syndrome [Recovering/Resolving]
  - Condition aggravated [Recovering/Resolving]
